FAERS Safety Report 5963362-X (Version None)
Quarter: 2008Q4

REPORT INFORMATION
  Report Type: 
  Country: None (occurrence: None)
  Receive Date: 20081124
  Receipt Date: 20081114
  Transmission Date: 20090506
  Serious: Yes (Other)
  Sender: FDA-Public Use
  Company Number: B0514234A

PATIENT
  Age: 36 Year
  Sex: Female

DRUGS (2)
  1. PAXIL [Suspect]
     Dosage: 30MG PER DAY
     Route: 048
     Dates: start: 20080304, end: 20080317
  2. ROHYPNOL [Concomitant]

REACTIONS (9)
  - AGITATION [None]
  - EMOTIONAL DISORDER [None]
  - EUPHORIC MOOD [None]
  - EYE DISORDER [None]
  - HYPERHIDROSIS [None]
  - INSOMNIA [None]
  - IRRITABILITY [None]
  - MYDRIASIS [None]
  - SEROTONIN SYNDROME [None]
